FAERS Safety Report 4514382-3 (Version None)
Quarter: 2004Q4

REPORT INFORMATION
  Report Type: 
  Country: None (occurrence: None)
  Receive Date: 20041124
  Receipt Date: 20041115
  Transmission Date: 20050328
  Serious: Yes (Other)
  Sender: FDA-Public Use
  Company Number: 2004-11-0795

PATIENT
  Age: 65 Year
  Sex: Female

DRUGS (1)
  1. GENTALLINE (GENTAMICIN SULFATE) INJECTABLE SOLUTION [Suspect]

REACTIONS (4)
  - DIZZINESS [None]
  - EYE PAIN [None]
  - PARALYSIS [None]
  - VESTIBULAR NEURONITIS [None]
